FAERS Safety Report 7544274-7 (Version None)
Quarter: 2011Q2

REPORT INFORMATION
  Report Type: 
  Country: None (occurrence: None)
  Receive Date: 20110613
  Receipt Date: 20071105
  Transmission Date: 20111010
  Serious: Yes (Death, Hospitalization, Other)
  Sender: FDA-Public Use
  Company Number: PHMT2007CA02002

PATIENT
  Sex: Male

DRUGS (1)
  1. SANDOSTATIN LAR [Suspect]
     Indication: PANCREATIC CARCINOMA
     Dosage: 20 MG, UNK
     Route: 030
     Dates: start: 20070723, end: 20071015

REACTIONS (5)
  - DEATH [None]
  - ASTHENIA [None]
  - FALL [None]
  - APPETITE DISORDER [None]
  - TREMOR [None]
